FAERS Safety Report 4432172-7 (Version None)
Quarter: 2004Q3

REPORT INFORMATION
  Report Type: 
  Country: None (occurrence: None)
  Receive Date: 20040820
  Receipt Date: 20040806
  Transmission Date: 20050211
  Serious: Yes (Hospitalization, Other)
  Sender: FDA-Public Use
  Company Number: 2004054158

PATIENT
  Age: 67 Year
  Sex: Female

DRUGS (3)
  1. ATORVASTATIN CALCIUM [Suspect]
     Indication: LIPID METABOLISM DISORDER
     Dosage: 40 MG (40 MG, 1 IN 1 D), ORAL
     Route: 047
     Dates: end: 20040510
  2. METOPROLOL TARTRATE [Concomitant]
  3. UNACID (AMPICILLIN SODIUM, SULBACTAM SODIUM) [Concomitant]

REACTIONS (3)
  - BLOOD CREATINE PHOSPHOKINASE INCREASED [None]
  - CONFUSIONAL STATE [None]
  - HEPATIC FUNCTION ABNORMAL [None]
